FAERS Safety Report 24619778 (Version 1)
Quarter: 2024Q4

REPORT INFORMATION
  Report Type: Spontaneous
  Country: US (occurrence: None)
  Receive Date: 20241114
  Receipt Date: 20241114
  Transmission Date: 20250115
  Serious: Yes (Life-Threatening, Hospitalization, Disabling)
  Sender: Public
  Company Number: None

PATIENT
  Age: 52 Year
  Sex: Female
  Weight: 60.75 kg

DRUGS (16)
  1. GADOLINIUM [Suspect]
     Active Substance: GADOLINIUM
     Indication: Magnetic resonance imaging
     Dates: start: 20170101
  2. LYRICA [Concomitant]
     Active Substance: PREGABALIN
  3. FLEXERIL [Concomitant]
     Active Substance: CYCLOBENZAPRINE HYDROCHLORIDE
  4. Corcef [Concomitant]
  5. LEVOTHYROXINE [Concomitant]
     Active Substance: LEVOTHYROXINE
  6. LOSARTAN [Concomitant]
     Active Substance: LOSARTAN
  7. ELIQUIS [Concomitant]
     Active Substance: APIXABAN
  8. ASPIRIN [Concomitant]
     Active Substance: ASPIRIN
  9. LINZESS [Concomitant]
     Active Substance: LINACLOTIDE
  10. FENOFIBRATE [Concomitant]
     Active Substance: FENOFIBRATE
  11. ROSUVASTATIN [Concomitant]
     Active Substance: ROSUVASTATIN
  12. MONTELUKAST [Concomitant]
     Active Substance: MONTELUKAST
  13. ALBUTEROL [Concomitant]
     Active Substance: ALBUTEROL
  14. RESTASIS [Concomitant]
     Active Substance: CYCLOSPORINE
  15. CETIRIZINE [Concomitant]
     Active Substance: CETIRIZINE HYDROCHLORIDE
  16. FAMOTIDINE [Concomitant]
     Active Substance: FAMOTIDINE

REACTIONS (12)
  - Contrast media reaction [None]
  - Fibrosis [None]
  - Organ failure [None]
  - Bedridden [None]
  - Metal poisoning [None]
  - Nephropathy [None]
  - Renal failure [None]
  - Muscle atrophy [None]
  - Angiopathy [None]
  - Cardiac failure [None]
  - Gastrointestinal haemorrhage [None]
  - Essential tremor [None]
